FAERS Safety Report 18152995 (Version 2)
Quarter: 2020Q3

REPORT INFORMATION
  Report Type: Spontaneous
  Country: AR (occurrence: AR)
  Receive Date: 20200814
  Receipt Date: 20200820
  Transmission Date: 20201103
  Serious: Yes (Hospitalization, Other)
  Sender: FDA-Public Use
  Company Number: AR-BIOMARINAP-AR-2020-131653

PATIENT
  Sex: Female

DRUGS (1)
  1. BRINEURA [Suspect]
     Active Substance: CERLIPONASE ALFA
     Indication: PRODUCT USED FOR UNKNOWN INDICATION
     Dosage: 300 MILLIGRAM
     Route: 020

REACTIONS (9)
  - Respiratory distress [Recovering/Resolving]
  - General physical health deterioration [Unknown]
  - Aspiration [Unknown]
  - Dysphagia [Unknown]
  - Irritability [Unknown]
  - Decreased appetite [Unknown]
  - Seizure [Recovering/Resolving]
  - Dehydration [Unknown]
  - Rhinorrhoea [Recovering/Resolving]

NARRATIVE: CASE EVENT DATE: 2020
